FAERS Safety Report 12616472 (Version 2)
Quarter: 2016Q3

REPORT INFORMATION
  Report Type: Spontaneous
  Country: US (occurrence: US)
  Receive Date: 20160802
  Receipt Date: 20160803
  Transmission Date: 20161109
  Serious: No
  Sender: FDA-Public Use
  Company Number: US-PFIZER INC-2016211117

PATIENT
  Age: 57 Year
  Sex: Female
  Weight: 70.6 kg

DRUGS (1)
  1. VANCOMYCIN HCL [Suspect]
     Active Substance: VANCOMYCIN HYDROCHLORIDE
     Indication: INFECTION
     Dosage: UNK

REACTIONS (3)
  - Tremor [Unknown]
  - Chills [Unknown]
  - Pyrexia [Unknown]
